FAERS Safety Report 20216377 (Version 4)
Quarter: 2022Q1

REPORT INFORMATION
  Report Type: Spontaneous
  Country: DE (occurrence: DE)
  Receive Date: 20211222
  Receipt Date: 20220331
  Transmission Date: 20220423
  Serious: Yes (Hospitalization, Other)
  Sender: FDA-Public Use
  Company Number: DE-BoehringerIngelheim-2021-BI-144961

PATIENT
  Age: 67 Year
  Sex: Female
  Weight: 61 kg

DRUGS (14)
  1. OFEV [Suspect]
     Active Substance: NINTEDANIB
     Indication: Pulmonary fibrosis
     Route: 048
     Dates: start: 202107
  2. Prednisolon 5 mg GALEN Tabletten [Concomitant]
     Indication: Product used for unknown indication
  3. GeloSitin Nasenpflege [Concomitant]
     Indication: Product used for unknown indication
  4. CALCIUM\CHOLECALCIFEROL [Concomitant]
     Active Substance: CALCIUM\CHOLECALCIFEROL
     Indication: Product used for unknown indication
     Dosage: 500 MG/400 IU?0-1-1-0
  5. Novaminsulfon 500 - 1A Pharma [Concomitant]
     Indication: Product used for unknown indication
     Dosage: UP TO 4X/DAY 2 TABLETS
  6. BONVIVA Infusion [Concomitant]
     Indication: Product used for unknown indication
     Dosage: 1X IN A QUARTER ?1-0-0-0
  7. CAPVAL [Concomitant]
     Indication: Product used for unknown indication
     Dosage: 20-20-20-20
  8. Felodipin 2.5 mg retard Heumann [Concomitant]
     Indication: Product used for unknown indication
     Dosage: 1-0-0-0
  9. XARELTO [Concomitant]
     Active Substance: RIVAROXABAN
     Indication: Product used for unknown indication
     Dates: end: 20211126
  10. XARELTO [Concomitant]
     Active Substance: RIVAROXABAN
     Dates: start: 20211127
  11. Amoxiclav 875/125 - 1A Pharma [Concomitant]
     Indication: Infection
     Dosage: 875MG/125MG?ACCORDING TO TREATMENT REGIME?FOR 7 DAYS
  12. PREDNISOLONE [Concomitant]
     Active Substance: PREDNISOLONE
     Indication: Infection
     Dosage: ACCORDING TO TREATMENT REGIME?FOR 4 DAYS
  13. PREDNISOLONE [Concomitant]
     Active Substance: PREDNISOLONE
     Dosage: 0.5-0-0-0?FOR 4 DAYS
  14. Long-term oxygen therapy [Concomitant]
     Indication: Product used for unknown indication

REACTIONS (4)
  - Pulmonary embolism [Not Recovered/Not Resolved]
  - Cor pulmonale acute [Unknown]
  - Transaminases increased [Recovered/Resolved]
  - Congestive hepatopathy [Unknown]

NARRATIVE: CASE EVENT DATE: 20211103
